FAERS Safety Report 6836589-2 (Version None)
Quarter: 2010Q3

REPORT INFORMATION
  Report Type: 
  Country: None (occurrence: None)
  Receive Date: 20100713
  Receipt Date: 20100630
  Transmission Date: 20110219
  Serious: Yes (Other)
  Sender: FDA-Public Use
  Company Number: PHHY2010US17462

PATIENT
  Sex: Female

DRUGS (7)
  1. EXTAVIA [Suspect]
     Indication: MULTIPLE SCLEROSIS
     Dosage: 0.125 MG, QOD
     Route: 058
     Dates: start: 20100301
  2. EXTAVIA [Suspect]
     Dosage: 0.25 MG, QOD
     Route: 058
     Dates: start: 20100301
  3. GABAPENTIN [Concomitant]
     Dosage: 300 MG, TID
  4. GABAPENTIN [Concomitant]
     Dosage: 400 MG, TID
  5. AMITIZA [Concomitant]
     Indication: IRRITABLE BOWEL SYNDROME
     Dosage: 8 UG, QD
  6. VITAMINS [Concomitant]
     Dosage: UNK,UNK
  7. NEURONTIN [Concomitant]
     Dosage: 300 MG, TID

REACTIONS (16)
  - BLINDNESS TRANSIENT [None]
  - CHEST PAIN [None]
  - CHILLS [None]
  - EYE PAIN [None]
  - HYPOAESTHESIA [None]
  - INFLUENZA LIKE ILLNESS [None]
  - INJECTION SITE ERYTHEMA [None]
  - INJECTION SITE PAIN [None]
  - INJECTION SITE PRURITUS [None]
  - INJECTION SITE REACTION [None]
  - INJECTION SITE SWELLING [None]
  - INSOMNIA [None]
  - OPTIC NEURITIS [None]
  - PYREXIA [None]
  - TREMOR [None]
  - VISION BLURRED [None]
